FAERS Safety Report 7819669-4 (Version None)
Quarter: 2011Q4

REPORT INFORMATION
  Report Type: 
  Country: None (occurrence: None)
  Receive Date: 20111018
  Receipt Date: 20111010
  Transmission Date: 20120403
  Serious: Yes (Other)
  Sender: FDA-Public Use
  Company Number: BR-PFIZER INC-2010078998

PATIENT
  Age: 46 Year
  Sex: Male
  Weight: 86 kg

DRUGS (2)
  1. GEODON [Suspect]
     Dosage: 80 MG
     Route: 048
     Dates: start: 20100101, end: 20100619
  2. VITAMIN B COMPLEX CAP [Concomitant]
     Dosage: UNK

REACTIONS (8)
  - DECREASED APPETITE [None]
  - ACCIDENTAL EXPOSURE [None]
  - MUSCULAR WEAKNESS [None]
  - LISTLESS [None]
  - ASTHENIA [None]
  - DRY MOUTH [None]
  - SLEEP DISORDER [None]
  - WEIGHT DECREASED [None]
